FAERS Safety Report 18291577 (Version 2)
Quarter: 2023Q1

REPORT INFORMATION
  Report Type: Spontaneous
  Country: US (occurrence: US)
  Receive Date: 20200921
  Receipt Date: 20230327
  Transmission Date: 20230417
  Serious: Yes (Other)
  Sender: FDA-Public Use
  Company Number: US-GILEAD-2020-0495218

PATIENT
  Age: 52 Year
  Sex: Male
  Weight: 77.098 kg

DRUGS (66)
  1. VIREAD [Suspect]
     Active Substance: TENOFOVIR DISOPROXIL FUMARATE
     Indication: HIV infection
     Dosage: UNK
     Route: 048
     Dates: start: 2008, end: 201811
  2. VIREAD [Suspect]
     Active Substance: TENOFOVIR DISOPROXIL FUMARATE
     Dosage: UNK
     Route: 048
     Dates: start: 2006
  3. VIREAD [Suspect]
     Active Substance: TENOFOVIR DISOPROXIL FUMARATE
     Dosage: UNK
     Route: 048
     Dates: start: 2008, end: 201807
  4. COMBIVIR [Concomitant]
     Active Substance: LAMIVUDINE\ZIDOVUDINE
  5. EPIVIR [Concomitant]
     Active Substance: LAMIVUDINE
  6. ISENTRESS [Concomitant]
     Active Substance: RALTEGRAVIR POTASSIUM
  7. JULUCA [Concomitant]
     Active Substance: DOLUTEGRAVIR SODIUM\RILPIVIRINE HYDROCHLORIDE
  8. KALETRA [Concomitant]
     Active Substance: LOPINAVIR\RITONAVIR
  9. SUSTIVA [Concomitant]
     Active Substance: EFAVIRENZ
  10. ACYCLOVIR [Concomitant]
     Active Substance: ACYCLOVIR
  11. ALLOPURINOL [Concomitant]
     Active Substance: ALLOPURINOL
  12. AMITRIPTYLINE [Concomitant]
     Active Substance: AMITRIPTYLINE
  13. AMOXICILLIN [Concomitant]
     Active Substance: AMOXICILLIN
  14. ASPIRIN [Concomitant]
     Active Substance: ASPIRIN
  15. AZITHROMYCIN [Concomitant]
     Active Substance: AZITHROMYCIN
  16. CALCIUM [Concomitant]
     Active Substance: CALCIUM
  17. CARVEDILOL [Concomitant]
     Active Substance: CARVEDILOL
  18. CEFUROXIME [Concomitant]
     Active Substance: CEFUROXIME
  19. CEPHALEXIN [Concomitant]
     Active Substance: CEPHALEXIN
  20. CIPROFLOXACIN [Concomitant]
     Active Substance: CIPROFLOXACIN
  21. CLINDAMYCIN [Concomitant]
     Active Substance: CLINDAMYCIN
  22. CLONIDINE [Concomitant]
     Active Substance: CLONIDINE
  23. COLCHICINE [Concomitant]
     Active Substance: COLCHICINE
  24. CYCLOBENZAPRINE [Concomitant]
     Active Substance: CYCLOBENZAPRINE
  25. DICYCLOMINE [Concomitant]
     Active Substance: DICYCLOMINE HYDROCHLORIDE
  26. DOCUSATE [Concomitant]
     Active Substance: DOCUSATE
  27. DOXYCYCLINE [Concomitant]
     Active Substance: DOXYCYCLINE
  28. ESOMEPRAZOLE [Concomitant]
     Active Substance: ESOMEPRAZOLE
  29. ESZOPICLONE [Concomitant]
     Active Substance: ESZOPICLONE
  30. HYDRALAZINE [Concomitant]
     Active Substance: HYDRALAZINE HYDROCHLORIDE
  31. ACETAMINOPHEN\HYDROCODONE [Concomitant]
     Active Substance: ACETAMINOPHEN\HYDROCODONE
  32. HYDROCODONE BITARTRATE AND ACETAMINOPHEN [Concomitant]
     Active Substance: ACETAMINOPHEN\HYDROCODONE BITARTRATE
  33. HYDROMORPHONE [Concomitant]
     Active Substance: HYDROMORPHONE
  34. LACTULOSE [Concomitant]
     Active Substance: LACTULOSE
  35. LAMIVUDINE [Concomitant]
     Active Substance: LAMIVUDINE
  36. LEVAQUIN [Concomitant]
     Active Substance: LEVOFLOXACIN
  37. LEVOFLOXACIN [Concomitant]
     Active Substance: LEVOFLOXACIN
  38. METHYLPREDNISOLONE [Concomitant]
     Active Substance: METHYLPREDNISOLONE
  39. METRONIDAZOLE [Concomitant]
     Active Substance: METRONIDAZOLE
  40. MYRBETRIQ [Concomitant]
     Active Substance: MIRABEGRON
  41. NEXIUM [Concomitant]
     Active Substance: ESOMEPRAZOLE MAGNESIUM
  42. ONDANSETRON [Concomitant]
     Active Substance: ONDANSETRON
  43. OXYBUTYNIN [Concomitant]
     Active Substance: OXYBUTYNIN
  44. OXYCODONE HYDROCHLORIDE [Concomitant]
     Active Substance: OXYCODONE HYDROCHLORIDE
  45. OXYCODONE AND ACETAMINOPHEN [Concomitant]
     Active Substance: ACETAMINOPHEN\OXYCODONE HYDROCHLORIDE
  46. OXYCODONE/APAP [Concomitant]
     Active Substance: ACETAMINOPHEN\OXYCODONE HYDROCHLORIDE
  47. PANTOPRAZOLE [Concomitant]
     Active Substance: PANTOPRAZOLE
  48. PEG 3350 [Concomitant]
     Active Substance: POLYETHYLENE GLYCOL 3350
  49. PLAVIX [Concomitant]
     Active Substance: CLOPIDOGREL BISULFATE
  50. PRAVASTATIN [Concomitant]
     Active Substance: PRAVASTATIN
  51. PROAIR HFA [Concomitant]
     Active Substance: ALBUTEROL SULFATE
  52. PROMETHAZINE [Concomitant]
     Active Substance: PROMETHAZINE HYDROCHLORIDE
  53. RANITIDINE [Concomitant]
     Active Substance: RANITIDINE
  54. RENVELA [Concomitant]
     Active Substance: SEVELAMER CARBONATE
  55. TAMSULOSIN [Concomitant]
     Active Substance: TAMSULOSIN
  56. TIZANIDINE [Concomitant]
     Active Substance: TIZANIDINE
  57. TRANSDERM SCOP [Concomitant]
     Active Substance: SCOPOLAMINE
  58. VALACYCLOVIR [Concomitant]
     Active Substance: VALACYCLOVIR HYDROCHLORIDE
  59. VALTREX [Concomitant]
     Active Substance: VALACYCLOVIR HYDROCHLORIDE
  60. VENTOLIN [Concomitant]
     Active Substance: ALBUTEROL SULFATE
  61. VITAMIN D2 [Concomitant]
     Active Substance: ERGOCALCIFEROL
  62. XYZAL [Concomitant]
     Active Substance: LEVOCETIRIZINE DIHYDROCHLORIDE
  63. HYDROXYZINE [Concomitant]
     Active Substance: HYDROXYZINE HYDROCHLORIDE
  64. OLANZAPINE [Concomitant]
     Active Substance: OLANZAPINE
  65. NEXIUM 24HR [Concomitant]
     Active Substance: ESOMEPRAZOLE MAGNESIUM
  66. LIPITOR [Concomitant]
     Active Substance: ATORVASTATIN CALCIUM

REACTIONS (9)
  - End stage renal disease [Not Recovered/Not Resolved]
  - Chronic kidney disease [Not Recovered/Not Resolved]
  - Osteoporosis [Not Recovered/Not Resolved]
  - Anxiety [Not Recovered/Not Resolved]
  - Renal disorder [Not Recovered/Not Resolved]
  - Pain [Unknown]
  - Emotional distress [Unknown]
  - Anhedonia [Unknown]
  - Gout [Not Recovered/Not Resolved]

NARRATIVE: CASE EVENT DATE: 20081201
